FAERS Safety Report 7012756-2 (Version None)
Quarter: 2010Q3

REPORT INFORMATION
  Report Type: 
  Country: None (occurrence: None)
  Receive Date: 20100924
  Receipt Date: 20100922
  Transmission Date: 20110219
  Serious: Yes (Hospitalization)
  Sender: FDA-Public Use
  Company Number: A0836705A

PATIENT
  Age: 45 Year
  Sex: Male
  Weight: 100 kg

DRUGS (9)
  1. AVANDIA [Suspect]
     Dosage: 4MG PER DAY
     Route: 048
     Dates: start: 20060201, end: 20090506
  2. GLUCOTROL [Concomitant]
     Dates: end: 20090501
  3. LIPITOR [Concomitant]
  4. PLAVIX [Concomitant]
     Dates: start: 20060201
  5. COREG [Concomitant]
  6. ASPIRIN [Concomitant]
  7. LIPITOR [Concomitant]
  8. GLUCOPHAGE [Concomitant]
  9. GLIPIZIDE [Concomitant]

REACTIONS (2)
  - MYOCARDIAL INFARCTION [None]
  - PAIN [None]
